FAERS Safety Report 13096952 (Version 1)
Quarter: 2017Q1

REPORT INFORMATION
  Report Type: Spontaneous
  Country: US (occurrence: US)
  Receive Date: 20170106
  Receipt Date: 20170106
  Transmission Date: 20170428
  Serious: Yes (Other)
  Sender: FDA-Public Use
  Company Number: None

PATIENT
  Age: 1 Year
  Sex: Female
  Weight: 9.5 kg

DRUGS (1)
  1. COMPUNDED HYDROCORTISONE CAPS [Suspect]
     Active Substance: HYDROCORTISONE
     Indication: ADRENOGENITAL SYNDROME
     Route: 048

REACTIONS (7)
  - Cushingoid [None]
  - Product preparation error [None]
  - Drug dispensing error [None]
  - 17-hydroxyprogesterone decreased [None]
  - Blood androstenedione decreased [None]
  - Therapy change [None]
  - Blood testosterone decreased [None]

NARRATIVE: CASE EVENT DATE: 20160907
